FAERS Safety Report 7588903-0 (Version None)
Quarter: 2011Q3

REPORT INFORMATION
  Report Type: 
  Country: None (occurrence: None)
  Receive Date: 20110705
  Receipt Date: 20110701
  Transmission Date: 20111222
  Serious: Yes (Hospitalization)
  Sender: FDA-Public Use
  Company Number: US-SANOFI-AVENTIS-2011SA006432

PATIENT
  Age: 89 Year
  Sex: Female
  Weight: 47 kg

DRUGS (14)
  1. WARFARIN SODIUM [Suspect]
     Indication: ATRIAL FIBRILLATION
     Route: 048
     Dates: start: 20090804, end: 20100511
  2. ASCORBIC ACID [Concomitant]
     Dates: start: 20090724
  3. METOLAZONE [Suspect]
     Route: 048
     Dates: start: 20090724, end: 20100511
  4. LISINOPRIL [Concomitant]
     Dates: start: 20100208
  5. AMBIEN [Concomitant]
     Dates: start: 20090804
  6. ASPIRIN [Concomitant]
     Dates: start: 20090804
  7. BLINDED THERAPY [Suspect]
     Indication: CARDIAC FAILURE CONGESTIVE
     Route: 048
     Dates: start: 20090623, end: 20090721
  8. FUROSEMIDE [Suspect]
     Route: 048
     Dates: start: 20090501, end: 20100511
  9. ZINC SULFATE [Concomitant]
     Dates: start: 20090725
  10. MULTI-VITAMINS [Concomitant]
     Dates: start: 20090725
  11. LORAZEPAM [Concomitant]
     Dates: start: 20090804
  12. PAXIL [Concomitant]
     Dates: start: 20090804
  13. POTASSIUM CHLORIDE [Concomitant]
     Dates: start: 20100208
  14. CORDARONE [Suspect]
     Indication: ATRIAL FIBRILLATION
     Route: 048
     Dates: start: 20100208, end: 20100511

REACTIONS (3)
  - COAGULOPATHY [None]
  - LIVER FUNCTION TEST ABNORMAL [None]
  - DEHYDRATION [None]
